FAERS Safety Report 8569657-8 (Version None)
Quarter: 2012Q3

REPORT INFORMATION
  Report Type: 
  Country: None (occurrence: None)
  Receive Date: 20120803
  Receipt Date: 20120326
  Transmission Date: 20120928
  Serious: No
  Sender: FDA-Public Use
  Company Number: US-ABBOTT-12P-163-0912288-00

PATIENT
  Sex: Male
  Weight: 108.96 kg

DRUGS (19)
  1. BYSTOLIC [Concomitant]
     Indication: HYPERTENSION
  2. CLOPIDOGREL BISULFATE [Concomitant]
     Indication: THROMBOSIS PROPHYLAXIS
  3. ALLOPURINOL [Concomitant]
     Indication: GOUT
  4. POTASSIUM CHLORIDE [Concomitant]
     Indication: PRODUCT USED FOR UNKNOWN INDICATION
  5. ASPIRIN [Concomitant]
     Indication: PROPHYLAXIS
  6. ARICEPT [Concomitant]
     Indication: AMNESIA
  7. SIMVASTATIN [Concomitant]
     Indication: BLOOD CHOLESTEROL INCREASED
  8. SPIRONOLACTONE [Concomitant]
     Indication: FLUID RETENTION
  9. MOBIC [Concomitant]
     Indication: PAIN
  10. GEMFIBROZIL [Concomitant]
     Indication: PRODUCT USED FOR UNKNOWN INDICATION
  11. LISINOPRIL [Concomitant]
     Indication: HYPERTENSION
  12. HUMALOG [Concomitant]
     Indication: DIABETES MELLITUS
  13. PAROXETINE [Concomitant]
     Indication: ANXIETY
  14. NIASPAN [Suspect]
     Indication: HIGH DENSITY LIPOPROTEIN DECREASED
     Dates: start: 20110201, end: 20110301
  15. NIASPAN [Suspect]
     Dates: start: 20110101, end: 20110201
  16. NIASPAN [Suspect]
     Dates: start: 20110301, end: 20110501
  17. TAMSULOSIN HCL [Concomitant]
     Indication: BENIGN PROSTATIC HYPERPLASIA
     Dosage: BED TIME
  18. NOVOLOG [Concomitant]
     Indication: DIABETES MELLITUS
  19. FUROSEMIDE [Concomitant]
     Indication: PRODUCT USED FOR UNKNOWN INDICATION

REACTIONS (2)
  - DIARRHOEA [None]
  - FLATULENCE [None]
